FAERS Safety Report 10466273 (Version 1)
Quarter: 2014Q3

REPORT INFORMATION
  Report Type: Spontaneous
  Country: US (occurrence: None)
  Receive Date: 20140919
  Receipt Date: 20140919
  Transmission Date: 20150326
  Serious: No
  Sender: FDA-Public Use
  Company Number: None

PATIENT
  Age: 39 Year
  Sex: Female

DRUGS (2)
  1. BOTOX [Suspect]
     Active Substance: ONABOTULINUMTOXINA
     Indication: MIGRAINE WITHOUT AURA
     Dosage: 200 UNITS, Q3M, IM
     Route: 030
     Dates: start: 20140414, end: 20140414
  2. BOTOX [Suspect]
     Active Substance: ONABOTULINUMTOXINA
     Indication: MIGRAINE
     Dosage: 200 UNITS, Q3M, IM
     Route: 030
     Dates: start: 20140414, end: 20140414

REACTIONS (2)
  - Rubber sensitivity [None]
  - Urticaria [None]
